FAERS Safety Report 8025154-X (Version None)
Quarter: 2012Q1

REPORT INFORMATION
  Report Type: 
  Country: None (occurrence: None)
  Receive Date: 20120105
  Receipt Date: 20120103
  Transmission Date: 20120608
  Serious: Yes (Death, Hospitalization, Disabling)
  Sender: FDA-Public Use
  Company Number: US-GLAXOSMITHKLINE-A0879751A

PATIENT
  Age: 66 Year
  Sex: Male

DRUGS (6)
  1. METFORMIN HCL [Concomitant]
  2. VYTORIN [Concomitant]
  3. JANUVIA [Concomitant]
  4. GLUCOPHAGE [Concomitant]
  5. AVANDIA [Suspect]
     Indication: DIABETES MELLITUS
     Dosage: 8MG PER DAY
     Route: 048
     Dates: start: 20031201, end: 20070101
  6. ADDERALL 5 [Concomitant]

REACTIONS (3)
  - ACUTE MYOCARDIAL INFARCTION [None]
  - DEATH [None]
  - CARDIOGENIC SHOCK [None]
